FAERS Safety Report 7978332-X (Version None)
Quarter: 2011Q4

REPORT INFORMATION
  Report Type: 
  Country: None (occurrence: None)
  Receive Date: 20111205
  Receipt Date: 20111125
  Transmission Date: 20120403
  Serious: Yes (Other)
  Sender: FDA-Public Use
  Company Number: 2011SP055275

PATIENT
  Sex: Male
  Weight: 2.59 kg

DRUGS (1)
  1. NUVARING [Suspect]
     Indication: MATERNAL EXPOSURE DURING PREGNANCY
     Dosage: ;TRPL
     Route: 064

REACTIONS (3)
  - MATERNAL DRUGS AFFECTING FOETUS [None]
  - VENTRICULAR EXTRASYSTOLES [None]
  - PREGNANCY WITH CONTRACEPTIVE DEVICE [None]
